FAERS Safety Report 9914035 (Version 2)
Quarter: 2014Q1

REPORT INFORMATION
  Report Type: Report from Study
  Country: JP (occurrence: JP)
  Receive Date: 20140220
  Receipt Date: 20140311
  Transmission Date: 20141002
  Serious: Yes (Other)
  Sender: FDA-Public Use
  Company Number: JP-GLAXOSMITHKLINE-B0872425A

PATIENT
  Age: 84 Year
  Sex: Female
  Weight: 52 kg

DRUGS (2)
  1. VOTRIENT 200MG [Suspect]
     Indication: MALIGNANT FIBROUS HISTIOCYTOMA
     Dosage: 800MG PER DAY
     Route: 048
     Dates: start: 20130205, end: 20130227
  2. VOTRIENT 200MG [Suspect]
     Indication: MALIGNANT FIBROUS HISTIOCYTOMA
     Dosage: 400MG PER DAY
     Route: 048
     Dates: start: 20130513, end: 20130527

REACTIONS (9)
  - Fatigue [Recovered/Resolved]
  - Hypertension [Recovered/Resolved]
  - Decreased appetite [Recovered/Resolved]
  - Nausea [Recovered/Resolved]
  - Vomiting [Recovered/Resolved]
  - Skin ulcer [Recovered/Resolved]
  - Hepatic function abnormal [Recovered/Resolved]
  - Epistaxis [Recovered/Resolved]
  - Purpura [Recovered/Resolved]
